FAERS Safety Report 10497230 (Version 2)
Quarter: 2014Q4

REPORT INFORMATION
  Report Type: Spontaneous
  Country: PL (occurrence: PL)
  Receive Date: 20141006
  Receipt Date: 20141023
  Transmission Date: 20150528
  Serious: Yes (Death, Other)
  Sender: FDA-Public Use
  Company Number: PL-UCBSA-2014012867

PATIENT
  Sex: Female

DRUGS (11)
  1. DEPAKINE CHRONO [Concomitant]
     Active Substance: VALPROATE SODIUM
     Indication: PRODUCT USED FOR UNKNOWN INDICATION
     Dosage: 0-500
  2. DEPAKINE CHRONO [Concomitant]
     Active Substance: VALPROATE SODIUM
     Dosage: 0-300 MG
     Route: 048
  3. FOLICUM [Concomitant]
     Indication: PRODUCT USED FOR UNKNOWN INDICATION
     Dosage: 5 MG, UNK
  4. VIMPAT [Suspect]
     Active Substance: LACOSAMIDE
     Dosage: AFTER 2 WEEKS 50 ? 200
     Route: 049
     Dates: start: 2014, end: 201409
  5. VIMPAT [Suspect]
     Active Substance: LACOSAMIDE
     Dosage: AFTER WEEK 50 - 100
     Route: 049
     Dates: start: 2014, end: 2014
  6. LAMOTRIX [Concomitant]
     Active Substance: LAMOTRIGINE
     Indication: PRODUCT USED FOR UNKNOWN INDICATION
     Dosage: 25-200
     Route: 048
  7. RISPOLEPT [Concomitant]
     Active Substance: RISPERIDONE
     Indication: MENTAL DISORDER
     Dosage: 1/2-1 MG
     Route: 048
  8. VIMPAT [Suspect]
     Active Substance: LACOSAMIDE
     Indication: EPILEPSY
     Dosage: 2X50
     Route: 049
     Dates: start: 201405, end: 2014
  9. VIMPAT [Suspect]
     Active Substance: LACOSAMIDE
     Dosage: AFTER WEEK 50 -150
     Route: 049
     Dates: start: 2014, end: 2014
  10. LAMOTRIX [Concomitant]
     Active Substance: LAMOTRIGINE
     Dosage: DOSE REDUCED TO 0-200
     Dates: start: 201406
  11. SABRIL [Concomitant]
     Active Substance: VIGABATRIN
     Indication: PRODUCT USED FOR UNKNOWN INDICATION
     Dosage: 0-1500 MG
     Route: 048

REACTIONS (1)
  - Sudden unexplained death in epilepsy [Fatal]

NARRATIVE: CASE EVENT DATE: 201409
